FAERS Safety Report 22090298 (Version 1)
Quarter: 2023Q1

REPORT INFORMATION
  Report Type: Spontaneous
  Country: US (occurrence: None)
  Receive Date: 20230313
  Receipt Date: 20230313
  Transmission Date: 20230418
  Serious: No
  Sender: FDA-Public Use
  Company Number: None

PATIENT
  Age: 93 Year
  Sex: Female
  Weight: 54.43 kg

DRUGS (2)
  1. RAYOS [Suspect]
     Active Substance: PREDNISONE
     Indication: Osteoporosis
     Dosage: ? TAKE 2 TABLETS BY MOUTH DAILY  AT BEDTIME
     Route: 048
     Dates: start: 202207
  2. RAYOS [Suspect]
     Active Substance: PREDNISONE
     Indication: Gout

REACTIONS (2)
  - Therapy interrupted [None]
  - Hospitalisation [None]
